FAERS Safety Report 5162385-0 (Version None)
Quarter: 2006Q4

REPORT INFORMATION
  Report Type: 
  Country: None (occurrence: None)
  Receive Date: 20061129
  Receipt Date: 20061129
  Transmission Date: 20070319
  Serious: Yes (Life-Threatening, Hospitalization)
  Sender: FDA-Public Use
  Company Number: None

PATIENT
  Age: 27 Year
  Sex: Female
  Weight: 99.7913 kg

DRUGS (1)
  1. JANTOVEN [Suspect]
     Indication: ANTIPHOSPHOLIPID SYNDROME
     Dosage: 10 MG M-W-F PO ; 7.5 MG SA-SU-TU-TH PO
     Route: 048
     Dates: start: 20051201, end: 20060410

REACTIONS (4)
  - INTERNATIONAL NORMALISED RATIO ABNORMAL [None]
  - INTRA-ABDOMINAL HAEMORRHAGE [None]
  - PHARMACEUTICAL PRODUCT COMPLAINT [None]
  - PROTHROMBIN TIME ABNORMAL [None]
